FAERS Safety Report 23096292 (Version 1)
Quarter: 2023Q4

REPORT INFORMATION
  Report Type: Spontaneous
  Country: US (occurrence: None)
  Receive Date: 20231019
  Receipt Date: 20231019
  Transmission Date: 20240109
  Serious: Yes (Hospitalization)
  Sender: FDA-Public Use
  Company Number: None

PATIENT
  Age: 76 Year
  Sex: Male
  Weight: 99 kg

DRUGS (1)
  1. ESCITALOPRAM OXALATE [Suspect]
     Active Substance: ESCITALOPRAM OXALATE
     Dosage: FREQUENCY : DAILY;?
     Route: 048
     Dates: start: 20230125, end: 20230307

REACTIONS (6)
  - Hallucination [None]
  - Suicidal ideation [None]
  - Drug ineffective [None]
  - Paradoxical drug reaction [None]
  - Anger [None]
  - Condition aggravated [None]

NARRATIVE: CASE EVENT DATE: 20230307
